FAERS Safety Report 19465989 (Version 1)
Quarter: 2021Q2

REPORT INFORMATION
  Report Type: Spontaneous
  Country: CN (occurrence: CN)
  Receive Date: 20210625
  Receipt Date: 20210625
  Transmission Date: 20210717
  Serious: Yes (Other)
  Sender: FDA-Public Use
  Company Number: CN-009507513-2106CHN005036

PATIENT
  Age: 53 Year
  Sex: Male
  Weight: 48 kg

DRUGS (4)
  1. ATORVASTATIN CALCIUM. [Suspect]
     Active Substance: ATORVASTATIN CALCIUM
     Indication: CAROTID ARTERY DISEASE
     Dosage: 20 MILLIGRAM, ONE TIME A DAY (ALSO REPORTED AS QN)
     Route: 048
     Dates: start: 20210602, end: 20210608
  2. INVANZ [Suspect]
     Active Substance: ERTAPENEM SODIUM
     Indication: ANTI-INFECTIVE THERAPY
     Dosage: 1 GRAM, QD (REPORTED AS ONE TIME A DAY)
     Route: 041
     Dates: start: 20210604, end: 20210609
  3. ATORVASTATIN CALCIUM. [Suspect]
     Active Substance: ATORVASTATIN CALCIUM
     Indication: PERIPHERAL ARTERIAL OCCLUSIVE DISEASE
  4. SODIUM CHLORIDE. [Concomitant]
     Active Substance: SODIUM CHLORIDE
     Indication: ANTI-INFECTIVE THERAPY
     Dosage: 100 MILLILITER, QD (REPORTED AS ONE TIME A DAY)
     Route: 041
     Dates: start: 20210604, end: 20210609

REACTIONS (2)
  - Hepatic function abnormal [Unknown]
  - Dermatitis allergic [Unknown]

NARRATIVE: CASE EVENT DATE: 20210608
